FAERS Safety Report 6414768-6 (Version None)
Quarter: 2009Q4

REPORT INFORMATION
  Report Type: 
  Country: None (occurrence: None)
  Receive Date: 20091026
  Receipt Date: 20091026
  Transmission Date: 20100525
  Serious: Yes (Hospitalization, Other)
  Sender: FDA-Public Use
  Company Number: None

PATIENT
  Age: 33 Year
  Sex: Male
  Weight: 88.4514 kg

DRUGS (1)
  1. ENBREL [Suspect]
     Indication: PSORIASIS
     Dosage: 50MG ONCE TO TWICE WEEK SQ
     Route: 058
     Dates: start: 20020501, end: 20091020

REACTIONS (13)
  - AMOEBIASIS [None]
  - CONDITION AGGRAVATED [None]
  - COUGH [None]
  - HYMENOLEPIASIS [None]
  - MYALGIA [None]
  - NASOPHARYNGITIS [None]
  - OPPORTUNISTIC INFECTION [None]
  - OROPHARYNGEAL PAIN [None]
  - PARASITIC GASTROENTERITIS [None]
  - PNEUMONIA [None]
  - PSORIASIS [None]
  - UNEVALUABLE EVENT [None]
  - UPPER RESPIRATORY TRACT INFECTION [None]
